FAERS Safety Report 14915013 (Version 1)
Quarter: 2018Q2

REPORT INFORMATION
  Report Type: Spontaneous
  Country: DE (occurrence: DE)
  Receive Date: 20180518
  Receipt Date: 20180518
  Transmission Date: 20180711
  Serious: Yes (Other)
  Sender: FDA-Public Use
  Company Number: DE-TEVA-2018-DE-893110

PATIENT
  Sex: Female

DRUGS (3)
  1. VOLTAREN SCHMERZGEL FORTE GEL [Suspect]
     Active Substance: DICLOFENAC DIETHYLAMINE
     Indication: BACK PAIN
     Route: 065
  2. VOLTAREN(DICLOFENAC) TABLET [Suspect]
     Active Substance: DICLOFENAC
     Indication: BACK PAIN
     Route: 065
  3. LETROZOL TABLET [Suspect]
     Active Substance: LETROZOLE
     Indication: BREAST CANCER
     Route: 065

REACTIONS (2)
  - Arrhythmia [Unknown]
  - Tachycardia [Unknown]

NARRATIVE: CASE EVENT DATE: 201711
